FAERS Safety Report 5845671-8 (Version None)
Quarter: 2008Q3

REPORT INFORMATION
  Report Type: 
  Country: None (occurrence: None)
  Receive Date: 20080814
  Receipt Date: 20080807
  Transmission Date: 20090109
  Serious: Yes (Life-Threatening)
  Sender: FDA-Public Use
  Company Number: FR-ROCHE-580203

PATIENT
  Age: 64 Year
  Sex: Male

DRUGS (9)
  1. VALIUM [Suspect]
     Indication: DELIRIUM TREMENS
     Route: 048
     Dates: start: 20080529, end: 20080530
  2. PLAVIX [Suspect]
     Indication: DRUG USE FOR UNKNOWN INDICATION
     Route: 048
     Dates: end: 20080530
  3. AMLOR [Concomitant]
  4. LASIX [Concomitant]
  5. SYMBICORT [Concomitant]
  6. COAPROVEL [Concomitant]
  7. INIPOMP [Concomitant]
  8. VITAMIN B1 TAB [Concomitant]
  9. VITAMIN B6 [Concomitant]

REACTIONS (2)
  - COMA [None]
  - RESPIRATORY DISTRESS [None]
